FAERS Safety Report 8612066-3 (Version None)
Quarter: 2012Q3

REPORT INFORMATION
  Report Type: 
  Country: None (occurrence: None)
  Receive Date: 20120822
  Receipt Date: 20120813
  Transmission Date: 20120928
  Serious: No
  Sender: FDA-Public Use
  Company Number: US-ASTRAZENECA-2012SE57136

PATIENT
  Age: 53 Year
  Sex: Female
  Weight: 103.4 kg

DRUGS (1)
  1. NEXIUM [Suspect]
     Indication: GASTROOESOPHAGEAL REFLUX DISEASE
     Route: 048
     Dates: start: 20050101

REACTIONS (4)
  - HYPERTENSION [None]
  - INTENTIONAL DRUG MISUSE [None]
  - BLOOD CHOLESTEROL INCREASED [None]
  - GASTROOESOPHAGEAL REFLUX DISEASE [None]
